FAERS Safety Report 6113047-4 (Version None)
Quarter: 2009Q1

REPORT INFORMATION
  Report Type: 
  Country: None (occurrence: None)
  Receive Date: 20090312
  Receipt Date: 20090226
  Transmission Date: 20090719
  Serious: Yes (Death)
  Sender: FDA-Public Use
  Company Number: CA-GENENTECH-277687

PATIENT
  Sex: Female

DRUGS (17)
  1. BLINDED BEVACIZUMAB [Suspect]
     Indication: DIFFUSE LARGE B-CELL LYMPHOMA
     Dosage: 1110 UNK, Q3W
     Route: 042
     Dates: start: 20090204, end: 20090213
  2. CYCLOPHOSPHAMIDE [Suspect]
     Indication: DIFFUSE LARGE B-CELL LYMPHOMA
     Dosage: 1110 UNK, Q3W
     Route: 042
     Dates: start: 20090204, end: 20090213
  3. DOXORUBICIN HCL [Suspect]
     Indication: DIFFUSE LARGE B-CELL LYMPHOMA
     Dosage: 1110 UNK, Q3W
     Route: 042
     Dates: start: 20090204, end: 20090213
  4. BLINDED PLACEBO [Suspect]
     Indication: DIFFUSE LARGE B-CELL LYMPHOMA
     Dosage: 1110 UNK, Q3W
     Route: 042
     Dates: start: 20090204, end: 20090213
  5. PREDNISONE TAB [Suspect]
     Indication: DIFFUSE LARGE B-CELL LYMPHOMA
     Dosage: 1110 UNK, Q3W
     Route: 042
     Dates: start: 20090204, end: 20090213
  6. BLINDED RITUXIMAB [Suspect]
     Indication: DIFFUSE LARGE B-CELL LYMPHOMA
     Dosage: 1110 UNK, Q3W
     Route: 042
     Dates: start: 20090204, end: 20090213
  7. VINCRISTINE [Suspect]
     Indication: DIFFUSE LARGE B-CELL LYMPHOMA
     Dosage: 1110 UNK, Q3W
     Route: 042
     Dates: start: 20090204, end: 20090213
  8. RITUXIMAB [Suspect]
     Indication: DIFFUSE LARGE B-CELL LYMPHOMA
     Dosage: 710 MG, Q3W
     Route: 042
     Dates: start: 20090205, end: 20090213
  9. CYCLOPHOSPHAMIDE [Suspect]
     Indication: DIFFUSE LARGE B-CELL LYMPHOMA
     Dosage: 1430 MG, Q3W
     Route: 042
     Dates: start: 20090205, end: 20090213
  10. DOXORUBICIN HCL [Suspect]
     Indication: DIFFUSE LARGE B-CELL LYMPHOMA
     Dosage: 95 MG, Q3W
     Route: 042
     Dates: start: 20090205, end: 20090213
  11. VINCRISTINE [Suspect]
     Indication: DIFFUSE LARGE B-CELL LYMPHOMA
     Dosage: 2 MG, Q3W
     Route: 042
     Dates: start: 20090205, end: 20090213
  12. PREDNISONE [Suspect]
     Indication: DIFFUSE LARGE B-CELL LYMPHOMA
     Dosage: 50 MG, UNK
     Route: 048
     Dates: start: 20000101, end: 20090213
  13. PLAQUENIL [Concomitant]
     Indication: DRUG USE FOR UNKNOWN INDICATION
  14. COLCHICINE [Concomitant]
     Indication: DRUG USE FOR UNKNOWN INDICATION
  15. ADVAIR HFA [Concomitant]
     Indication: DRUG USE FOR UNKNOWN INDICATION
  16. ZANTAC [Concomitant]
     Indication: DRUG USE FOR UNKNOWN INDICATION
  17. NAPROSYN [Concomitant]
     Indication: DRUG USE FOR UNKNOWN INDICATION

REACTIONS (1)
  - PULMONARY EMBOLISM [None]
